FAERS Safety Report 8074854-4 (Version None)
Quarter: 2012Q1

REPORT INFORMATION
  Report Type: 
  Country: None (occurrence: None)
  Receive Date: 20120126
  Receipt Date: 20120117
  Transmission Date: 20120608
  Serious: Yes (Hospitalization)
  Sender: FDA-Public Use
  Company Number: US-ASTRAZENECA-2011SE51111

PATIENT
  Age: 50 Year
  Sex: Female
  Weight: 56.7 kg

DRUGS (6)
  1. SEROQUEL XR [Suspect]
     Route: 048
  2. SEROQUEL XR [Suspect]
     Indication: BIPOLAR I DISORDER
     Route: 048
  3. XANAX [Concomitant]
     Indication: ANXIETY
     Route: 048
     Dates: start: 20101001
  4. AMBIEN CR [Concomitant]
     Route: 048
     Dates: start: 20050101
  5. SEROQUEL XR [Suspect]
     Indication: MANIA
     Route: 048
  6. SEROQUEL XR [Suspect]
     Route: 048

REACTIONS (19)
  - NAUSEA [None]
  - ELECTROCARDIOGRAM Q WAVE ABNORMAL [None]
  - DIZZINESS [None]
  - BLOOD MAGNESIUM DECREASED [None]
  - BLOOD SODIUM DECREASED [None]
  - MANIA [None]
  - PALPITATIONS [None]
  - VITAMIN B12 DECREASED [None]
  - BLOOD CHOLESTEROL INCREASED [None]
  - BLOOD POTASSIUM DECREASED [None]
  - CONFUSIONAL STATE [None]
  - INSOMNIA [None]
  - ADVERSE EVENT [None]
  - WEIGHT INCREASED [None]
  - PSYCHOTIC DISORDER [None]
  - DRUG DOSE OMISSION [None]
  - BLOOD PRESSURE INCREASED [None]
  - HEART RATE INCREASED [None]
  - MEMORY IMPAIRMENT [None]
